FAERS Safety Report 5118972-9 (Version None)
Quarter: 2006Q3

REPORT INFORMATION
  Report Type: 
  Country: None (occurrence: None)
  Receive Date: 20060927
  Receipt Date: 20060913
  Transmission Date: 20061208
  Serious: Yes (Death, Hospitalization)
  Sender: FDA-Public Use
  Company Number: FABR-11526

PATIENT
  Age: 58 Year
  Sex: Male

DRUGS (5)
  1. FABRAZYME [Suspect]
     Indication: FABRY'S DISEASE
     Dates: end: 20060504
  2. FABRAZYME [Suspect]
     Indication: FABRY'S DISEASE
     Dosage: 1 MG/KG Q2WKS IV
     Route: 042
     Dates: start: 20001219
  3. NEORAL [Concomitant]
  4. CELLCEPT [Concomitant]
  5. SOLUPRED [Concomitant]

REACTIONS (17)
  - ANURIA [None]
  - ARTERIOVENOUS FISTULA SITE COMPLICATION [None]
  - BRAIN SCAN ABNORMAL [None]
  - COMA [None]
  - COMPUTERISED TOMOGRAM ABDOMEN ABNORMAL [None]
  - HYPOTENSION [None]
  - HYPOTHERMIA [None]
  - MULTI-ORGAN FAILURE [None]
  - NEUROLOGICAL SYMPTOM [None]
  - PERITONEAL EFFUSION [None]
  - PERITONITIS [None]
  - PSYCHOMOTOR RETARDATION [None]
  - SEPSIS [None]
  - SIGMOIDITIS [None]
  - SKIN DISCOLOURATION [None]
  - STAPHYLOCOCCAL INFECTION [None]
  - STREPTOCOCCAL INFECTION [None]
